FAERS Safety Report 12578582 (Version 1)
Quarter: 2016Q3

REPORT INFORMATION
  Report Type: Spontaneous
  Country: US (occurrence: US)
  Receive Date: 20160721
  Receipt Date: 20160721
  Transmission Date: 20161109
  Serious: No
  Sender: FDA-Public Use
  Company Number: US-BAYER-2016-135110

PATIENT
  Age: 84 Year
  Sex: Male
  Weight: 83.9 kg

DRUGS (2)
  1. CLARITIN [Suspect]
     Active Substance: LORATADINE
     Indication: SEASONAL ALLERGY
     Dosage: 1 DF, QD
     Route: 048
     Dates: end: 20160708
  2. FLONASE [Concomitant]
     Active Substance: FLUTICASONE PROPIONATE
     Indication: NASAL CONGESTION
     Dosage: UNK

REACTIONS (5)
  - Somnolence [Recovered/Resolved]
  - Fatigue [None]
  - Somnolence [Recovered/Resolved]
  - Fatigue [Recovered/Resolved]
  - Depressed mood [None]

NARRATIVE: CASE EVENT DATE: 20160707
